FAERS Safety Report 14647912 (Version 1)
Quarter: 2018Q1

REPORT INFORMATION
  Report Type: Spontaneous
  Country: SE (occurrence: SE)
  Receive Date: 20180316
  Receipt Date: 20180316
  Transmission Date: 20180509
  Serious: Yes (Other)
  Sender: FDA-Public Use
  Company Number: SE-TEVA-2018-SE-868611

PATIENT
  Age: 19 Year
  Sex: Female

DRUGS (3)
  1. SERTRALINE [Suspect]
     Active Substance: SERTRALINE HYDROCHLORIDE
     Indication: DEPRESSION
     Dosage: UNCLEAR DOSAGE.
     Route: 048
  2. THERALEN [Concomitant]
     Active Substance: TRIMEPRAZINE
  3. MELATONIN AGB [Concomitant]

REACTIONS (1)
  - Laryngospasm [Not Recovered/Not Resolved]
